FAERS Safety Report 8356007-5 (Version None)
Quarter: 2012Q2

REPORT INFORMATION
  Report Type: 
  Country: None (occurrence: None)
  Receive Date: 20120511
  Receipt Date: 20120511
  Transmission Date: 20120825
  Serious: Yes (Disabling, Other)
  Sender: FDA-Public Use
  Company Number: None

PATIENT
  Age: 24 Year
  Sex: Male
  Weight: 81.6475 kg

DRUGS (1)
  1. FINASTERIDE [Suspect]
     Indication: ALOPECIA
     Dosage: 1MG EVERY DAY PO
     Route: 048
     Dates: start: 20110108, end: 20120123

REACTIONS (8)
  - ANXIETY [None]
  - PANIC ATTACK [None]
  - INSOMNIA [None]
  - TESTICULAR PAIN [None]
  - CONSTIPATION [None]
  - APATHY [None]
  - ERECTILE DYSFUNCTION [None]
  - EMOTIONAL DISORDER [None]
